FAERS Safety Report 5884158-3 (Version None)
Quarter: 2008Q3

REPORT INFORMATION
  Report Type: 
  Country: None (occurrence: None)
  Receive Date: 20080915
  Receipt Date: 20080905
  Transmission Date: 20090109
  Serious: Yes (Other)
  Sender: FDA-Public Use
  Company Number: PHFR2008GB01137

PATIENT
  Sex: Male
  Weight: 29.2 kg

DRUGS (6)
  1. EXJADE [Suspect]
     Indication: THALASSAEMIA BETA
     Dosage: 500 MG, UNK
     Route: 065
     Dates: start: 20080301
  2. EXJADE [Suspect]
     Dosage: 250 MG, UNK
     Route: 065
     Dates: start: 20080310, end: 20080314
  3. EXJADE [Suspect]
     Dosage: 250 MG, UNK
     Route: 065
     Dates: start: 20080421
  4. EXJADE [Suspect]
     Dosage: 500 MG, UNK
     Dates: start: 20080619
  5. EXJADE [Suspect]
     Dosage: 375 MG, UNK
     Route: 065
     Dates: start: 20080826
  6. DESFERAL [Concomitant]

REACTIONS (5)
  - BLOOD UREA INCREASED [None]
  - HEPATIC ENZYME INCREASED [None]
  - NEUTROPHIL COUNT DECREASED [None]
  - RASH [None]
  - WHITE BLOOD CELL COUNT DECREASED [None]
